FAERS Safety Report 5885442-X (Version None)
Quarter: 2008Q3

REPORT INFORMATION
  Report Type: 
  Country: None (occurrence: None)
  Receive Date: 20080915
  Receipt Date: 20080915
  Transmission Date: 20090109
  Serious: Yes (Hospitalization)
  Sender: FDA-Public Use
  Company Number: None

PATIENT
  Age: 52 Year
  Sex: Male
  Weight: 145.151 kg

DRUGS (1)
  1. VENLAFAXINE HCL [Suspect]
     Indication: DEPRESSION
     Dosage: 1 TWICE DAILY PO
     Route: 048
     Dates: start: 20070921, end: 20071003

REACTIONS (13)
  - ABNORMAL DREAMS [None]
  - ADVERSE DRUG REACTION [None]
  - CORONARY ARTERY EMBOLISM [None]
  - DYSKINESIA [None]
  - IMMOBILE [None]
  - LETHARGY [None]
  - PULMONARY EMBOLISM [None]
  - RASH PRURITIC [None]
  - SLEEP TALKING [None]
  - SOMNOLENCE [None]
  - THINKING ABNORMAL [None]
  - THIRST [None]
  - THROMBOSIS [None]
